FAERS Safety Report 19952664 (Version 3)
Quarter: 2022Q1

REPORT INFORMATION
  Report Type: Report from Study
  Country: JP (occurrence: JP)
  Receive Date: 20211014
  Receipt Date: 20220118
  Transmission Date: 20220424
  Serious: Yes (Death, Hospitalization, Other)
  Sender: FDA-Public Use
  Company Number: JP-CELLTRION INC.-2021JP013894

PATIENT

DRUGS (10)
  1. INVESTIGATIONAL BIOSIMILARS [Suspect]
     Active Substance: INVESTIGATIONAL BIOSIMILARS
     Indication: HER2 positive gastric cancer
     Dosage: 432 MILLIGRAM, QD
     Route: 041
     Dates: start: 20210527, end: 20210527
  2. CAPECITABINE [Suspect]
     Active Substance: CAPECITABINE
     Indication: HER2 positive gastric cancer
     Dosage: 3000 MILLIGRAM, QD
     Route: 048
     Dates: start: 20210527, end: 20210611
  3. MIYA-BM [Concomitant]
     Active Substance: CLOSTRIDIUM BUTYRICUM SPORES STRAIN M-55
     Indication: Diarrhoea
     Dosage: UNK
  4. LANSOPRAZOLE [Concomitant]
     Active Substance: LANSOPRAZOLE
     Indication: Gastrooesophageal reflux disease
     Dosage: UNK, OD
  5. EDOXABAN TOSYLATE [Concomitant]
     Active Substance: EDOXABAN TOSYLATE
     Dosage: UNK, OD
  6. PYRIDOXAL [Concomitant]
     Active Substance: PYRIDOXAL
     Indication: Palmar-plantar erythrodysaesthesia syndrome
     Dosage: UNK
     Dates: start: 20210527
  7. PYRIDOXAL [Concomitant]
     Active Substance: PYRIDOXAL
     Indication: Prophylaxis
  8. HEPARINOID [Concomitant]
     Indication: Palmar-plantar erythrodysaesthesia syndrome
     Dosage: UNK
     Route: 062
     Dates: start: 20210527
  9. HEPARINOID [Concomitant]
     Indication: Prophylaxis
  10. METOCLOPRAMIDE [Concomitant]
     Active Substance: METOCLOPRAMIDE
     Indication: Prophylaxis of nausea and vomiting
     Dosage: DOSE OF AS NEEDED

REACTIONS (8)
  - Dyspnoea [Fatal]
  - Pleural effusion [Recovering/Resolving]
  - Nausea [Recovered/Resolved]
  - Decreased appetite [Recovering/Resolving]
  - Palmar-plantar erythrodysaesthesia syndrome [Recovered/Resolved]
  - Pain [Not Recovered/Not Resolved]
  - Insomnia [Recovered/Resolved]
  - Anaemia [Not Recovered/Not Resolved]

NARRATIVE: CASE EVENT DATE: 20210527
